FAERS Safety Report 15763161 (Version 3)
Quarter: 2019Q1

REPORT INFORMATION
  Report Type: Spontaneous
  Country: US (occurrence: US)
  Receive Date: 20181226
  Receipt Date: 20190112
  Transmission Date: 20190417
  Serious: Yes (Other)
  Sender: FDA-Public Use
  Company Number: US-BAXTER-2018BAX031101

PATIENT
  Age: 50 Year
  Sex: Female

DRUGS (1)
  1. 0.9% SODIUM CHLORIDE IRRIGATION, USP [Suspect]
     Active Substance: SODIUM CHLORIDE
     Indication: PRODUCT USED FOR UNKNOWN INDICATION
     Route: 065

REACTIONS (1)
  - Bacterial infection [Recovering/Resolving]
